FAERS Safety Report 15812388 (Version 1)
Quarter: 2019Q1

REPORT INFORMATION
  Report Type: Report from Study
  Country: IT (occurrence: IT)
  Receive Date: 20190111
  Receipt Date: 20190111
  Transmission Date: 20190417
  Serious: Yes (Other)
  Sender: FDA-Public Use
  Company Number: IT-BAUSCH-BL-2019-000498

PATIENT
  Age: 40 Year
  Sex: Male

DRUGS (1)
  1. ACICLOVIR [Suspect]
     Active Substance: ACYCLOVIR
     Indication: ORAL HERPES
     Route: 061
     Dates: start: 20181209, end: 20181209

REACTIONS (1)
  - Bronchospasm [Recovering/Resolving]

NARRATIVE: CASE EVENT DATE: 20181209
